FAERS Safety Report 9444719 (Version 2)
Quarter: 2013Q3

REPORT INFORMATION
  Report Type: Spontaneous
  Country: US (occurrence: None)
  Receive Date: 20130805
  Receipt Date: 20130822
  Transmission Date: 20140515
  Serious: Yes (Hospitalization)
  Sender: FDA-Public Use
  Company Number: UTC-035944

PATIENT
  Age: 34 Year
  Sex: Female
  Weight: 59 kg

DRUGS (6)
  1. REMODULIN [Suspect]
     Indication: PULMONARY ARTERIAL HYPERTENSION
     Route: 041
     Dates: start: 20120914
  2. ADCIRCA (TADALAFIL) [Concomitant]
  3. ACETAMINOPHEN (PARACETAMOL) [Concomitant]
  4. JANTOVEN (WARFARIN SODIUM) [Concomitant]
  5. LETAIRIS (AMBRISENTAN) (TABLETS) [Concomitant]
  6. VITAMIN D (ERGOCALCIFEROL) [Concomitant]

REACTIONS (15)
  - Toxicity to various agents [None]
  - Nausea [None]
  - Vomiting [None]
  - Flushing [None]
  - Hypotension [None]
  - Tachycardia [None]
  - Chest pain [None]
  - Headache [None]
  - Injection site reaction [None]
  - International normalised ratio increased [None]
  - Implant site pain [None]
  - Implant site erythema [None]
  - Implant site swelling [None]
  - Feeling hot [None]
  - Hepatic function abnormal [None]
